FAERS Safety Report 4645348-0 (Version None)
Quarter: 2005Q2

REPORT INFORMATION
  Report Type: 
  Country: None (occurrence: None)
  Receive Date: 20050331
  Receipt Date: 20050120
  Transmission Date: 20051028
  Serious: Yes (Death)
  Sender: FDA-Public Use
  Company Number: 04P-163-0284983-00

PATIENT
  Age: 62 Year
  Sex: Male

DRUGS (4)
  1. HUMIRA [Suspect]
     Indication: RHEUMATOID ARTHRITIS
     Dosage: 40 MG, 1 IN 2 WK, SUBCUTANEOUS
     Route: 057
     Dates: start: 20040401
  2. TRANDOLAPRIL [Concomitant]
  3. PREDNISOLONE [Concomitant]
  4. FUROSEMIDE [Concomitant]

REACTIONS (1)
  - DEATH [None]
